FAERS Safety Report 5648604-2 (Version None)
Quarter: 2008Q1

REPORT INFORMATION
  Report Type: 
  Country: None (occurrence: None)
  Receive Date: 20080131
  Receipt Date: 20071108
  Transmission Date: 20080703
  Serious: No
  Sender: FDA-Public Use
  Company Number: US200707006197

PATIENT
  Age: 75 Year
  Sex: Female

DRUGS (4)
  1. BYETTA [Suspect]
     Indication: INSULIN-REQUIRING TYPE 2 DIABETES MELLITUS
     Dosage: 5 UG, SUBCUTANEOUS; 10 UG SUBCUTANEOUS
     Route: 058
     Dates: start: 20070101, end: 20070101
  2. BYETTA [Suspect]
     Indication: INSULIN-REQUIRING TYPE 2 DIABETES MELLITUS
     Dosage: 5 UG, SUBCUTANEOUS; 10 UG SUBCUTANEOUS
     Route: 058
     Dates: start: 20070401
  3. BYETTA [Suspect]
     Indication: INSULIN-REQUIRING TYPE 2 DIABETES MELLITUS
     Dosage: 5 UG, SUBCUTANEOUS; 10 UG SUBCUTANEOUS
     Route: 058
     Dates: start: 20070601
  4. NOVOLIN N [Concomitant]

REACTIONS (5)
  - BLOOD GLUCOSE INCREASED [None]
  - HIATUS HERNIA [None]
  - NAUSEA [None]
  - NON-CARDIAC CHEST PAIN [None]
  - THROAT IRRITATION [None]
